FAERS Safety Report 4479434-5 (Version None)
Quarter: 2004Q4

REPORT INFORMATION
  Report Type: 
  Country: None (occurrence: None)
  Receive Date: 20041015
  Receipt Date: 20041007
  Transmission Date: 20050328
  Serious: Yes (Death, Hospitalization)
  Sender: FDA-Public Use
  Company Number: F03200400096

PATIENT
  Age: 80 Year
  Sex: Male
  Weight: 72 kg

DRUGS (7)
  1. ELOXATIN [Suspect]
     Indication: COLORECTAL CANCER METASTATIC
     Dosage: 215 MG ONCE - INTRAVENOUS NOS
     Route: 042
     Dates: start: 20040914, end: 20040914
  2. ALIMTA [Suspect]
     Indication: COLORECTAL CANCER METASTATIC
     Dosage: 1432 MG ONCE - INTRAVENOUS NOS
     Route: 042
     Dates: start: 20040914, end: 20040914
  3. WARFARIN SODIUM [Concomitant]
  4. PANTOPRAZOLE SODIUM [Concomitant]
  5. OXYCODONE [Concomitant]
  6. SENNA FRUIT [Concomitant]
  7. NORCO [Concomitant]

REACTIONS (5)
  - COMA [None]
  - GENERAL PHYSICAL HEALTH DETERIORATION [None]
  - INTESTINAL PERFORATION [None]
  - NEUTROPENIA [None]
  - SEPTIC SHOCK [None]
